FAERS Safety Report 20083296 (Version 1)
Quarter: 2021Q4

REPORT INFORMATION
  Report Type: Spontaneous
  Country: DE (occurrence: DE)
  Receive Date: 20211117
  Receipt Date: 20211117
  Transmission Date: 20220303
  Serious: Yes (Hospitalization, Other)
  Sender: FDA-Public Use
  Company Number: DE-ADRED-07065-01

PATIENT
  Age: 92 Year
  Sex: Female
  Weight: 55 kg

DRUGS (11)
  1. TORSEMIDE [Suspect]
     Active Substance: TORSEMIDE
     Indication: Product used for unknown indication
     Dosage: 10 MILLIGRAM, QD (1.5-0-0-0, TABLETTEN)
     Route: 048
  2. SPIRONOLACTONE [Suspect]
     Active Substance: SPIRONOLACTONE
     Indication: Product used for unknown indication
     Dosage: 50 MILLIGRAM ( MONTAG MITTWOCH FREITAG FRUH EINE TABLETTE, TABLETTEN)
     Route: 048
  3. XIPAMIDE [Suspect]
     Active Substance: XIPAMIDE
     Indication: Product used for unknown indication
     Dosage: 10 MILLIGRAM, QD (1-0-0-0, TABLETTEN)
     Route: 048
  4. EDOXABAN TOSYLATE [Suspect]
     Active Substance: EDOXABAN TOSYLATE
     Indication: Product used for unknown indication
     Dosage: 30 MILLIGRAM, QD (1-0-0-0, TABLETTEN)
     Route: 048
  5. BISACODYL [Concomitant]
     Active Substance: BISACODYL
     Dosage: 10 MILLIGRAM (BEI BEDARF, SUPPOSITORIEN)
     Route: 054
  6. CANDESARTAN [Concomitant]
     Active Substance: CANDESARTAN
     Dosage: 16 MILLIGRAM (1-0-1-0, TABLETTEN)
     Route: 048
  7. NALOXONE HYDROCHLORIDE\TILIDINE HYDROCHLORIDE [Concomitant]
     Active Substance: NALOXONE HYDROCHLORIDE\TILIDINE HYDROCHLORIDE
     Dosage: UNK (8/100 MG, 2-0-2-0, RETARD-TABLETTEN)
     Route: 048
  8. AMLODIPIN                          /00972401/ [Concomitant]
     Dosage: 5 MILLIGRAM (1-0-1-0, TABLETTEN)
     Route: 048
  9. METAMIZOL                          /06276701/ [Concomitant]
     Dosage: 500 MILLIGRAM (1-1-1-1, TABLETTEN)
     Route: 048
  10. DULCOLAX NP [Concomitant]
     Dosage: 2.5 MILLIGRAM (AS NEEDED, CAPSULES)
     Route: 048
  11. QUETIAPINE [Concomitant]
     Active Substance: QUETIAPINE
     Dosage: 25 MILLIGRAM, QD (1-0-0-0, TABLETTEN)
     Route: 048

REACTIONS (11)
  - Gastritis haemorrhagic [Unknown]
  - Dysphagia [Unknown]
  - Hyponatraemia [Unknown]
  - Abdominal pain [Unknown]
  - Dehydration [Unknown]
  - Weight decreased [Unknown]
  - Flatulence [Unknown]
  - Eructation [Unknown]
  - Decreased appetite [Unknown]
  - Product prescribing error [Unknown]
  - Faeces hard [Unknown]
